FAERS Safety Report 21394457 (Version 5)
Quarter: 2024Q1

REPORT INFORMATION
  Report Type: Other
  Country: ZA (occurrence: None)
  Receive Date: 20220930
  Receipt Date: 20240118
  Transmission Date: 20240410
  Serious: Yes (Other)
  Sender: FDA-Public Use
  Company Number: ZA-ROCHE-3059049

PATIENT
  Age: 57 Year
  Sex: Female

DRUGS (6)
  1. MABTHERA [Suspect]
     Active Substance: RITUXIMAB
     Indication: Rheumatoid arthritis
     Dosage: REPEATED 6 MONTHLY
     Route: 041
     Dates: start: 20170904, end: 20170918
  2. MABTHERA [Suspect]
     Active Substance: RITUXIMAB
     Dosage: REPEATED 6 MONTHLY
     Route: 041
     Dates: start: 20201023
  3. ORENCIA [Suspect]
     Active Substance: ABATACEPT
     Indication: Rheumatoid arthritis
     Route: 058
     Dates: start: 201701, end: 201706
  4. ACTEMRA [Suspect]
     Active Substance: TOCILIZUMAB
     Indication: Rheumatoid arthritis
     Route: 058
     Dates: start: 202210
  5. TRASTUZUMAB [Suspect]
     Active Substance: TRASTUZUMAB
     Indication: Breast cancer
     Route: 065
     Dates: start: 202102
  6. DOCETAXEL [Suspect]
     Active Substance: DOCETAXEL\DOCETAXEL ANHYDROUS
     Indication: Breast cancer
     Route: 065
     Dates: start: 202102

REACTIONS (6)
  - Breast cancer [Unknown]
  - Cardiomyopathy [Unknown]
  - Cardiotoxicity [Unknown]
  - White blood cell count increased [Unknown]
  - Alanine aminotransferase increased [Unknown]
  - Aspartate aminotransferase increased [Unknown]

NARRATIVE: CASE EVENT DATE: 20210121
